FAERS Safety Report 5856585-1 (Version None)
Quarter: 2008Q3

REPORT INFORMATION
  Report Type: 
  Country: None (occurrence: None)
  Receive Date: 20080825
  Receipt Date: 20080820
  Transmission Date: 20090109
  Serious: Yes (Hospitalization)
  Sender: FDA-Public Use
  Company Number: US-MERCK-0708USA01443

PATIENT
  Age: 64 Year
  Sex: Female

DRUGS (1)
  1. FOSAMAX [Suspect]
     Indication: OSTEOPOROSIS
     Route: 048
     Dates: start: 20010101, end: 20050101

REACTIONS (9)
  - CEREBRAL VENTRICLE DILATATION [None]
  - EXOSTOSIS [None]
  - JAW DISORDER [None]
  - MASTICATION DISORDER [None]
  - NASAL SEPTUM DEVIATION [None]
  - OSTEONECROSIS [None]
  - ROTATOR CUFF SYNDROME [None]
  - TEMPOROMANDIBULAR JOINT SYNDROME [None]
  - WEIGHT DECREASED [None]
